FAERS Safety Report 8866275 (Version 2)
Quarter: 2012Q4

REPORT INFORMATION
  Report Type: 
  Country: US (occurrence: US)
  Receive Date: 20121025
  Receipt Date: 20121101
  Transmission Date: 20130627
  Serious: Yes (Other)
  Sender: FDA-Public Use
  Company Number: US-ASTRAZENECA-2009UW11189

PATIENT
  Age: 68 Year
  Sex: Female
  Weight: 54.4 kg

DRUGS (10)
  1. ARIMIDEX [Suspect]
     Indication: BREAST CANCER
     Route: 048
     Dates: start: 20090413
  2. ARIMIDEX [Suspect]
     Indication: BREAST CANCER
     Route: 048
     Dates: start: 201209
  3. FASLODEX [Suspect]
     Route: 030
     Dates: start: 201111, end: 201209
  4. TAMOXIFEN [Suspect]
     Route: 048
  5. PREDNISONE [Concomitant]
     Indication: POLYMYALGIA RHEUMATICA
  6. HYDROCODONE [Concomitant]
  7. SYNTHROID [Concomitant]
     Indication: HYPOTHYROIDISM
  8. HERBAL SUPPLEMENTS [Concomitant]
     Indication: CONSTIPATION
  9. EFFEXOR [Concomitant]
  10. AROMASIN [Concomitant]

REACTIONS (17)
  - Intestinal obstruction [Unknown]
  - Lymphoedema [Unknown]
  - Constipation [Unknown]
  - Back pain [Unknown]
  - Abdominal pain [Unknown]
  - Pain [Unknown]
  - Insomnia [Unknown]
  - Tumour marker increased [Unknown]
  - Feeling abnormal [Unknown]
  - Gastritis [Unknown]
  - Gait disturbance [Unknown]
  - Abdominal distension [Unknown]
  - Myalgia [Unknown]
  - Hot flush [Unknown]
  - Arthralgia [Unknown]
  - Fatigue [Recovering/Resolving]
  - Adverse event [Unknown]
